FAERS Safety Report 8622666-2 (Version None)
Quarter: 2012Q3

REPORT INFORMATION
  Report Type: 
  Country: None (occurrence: None)
  Receive Date: 20120827
  Receipt Date: 20120816
  Transmission Date: 20120928
  Serious: Yes (Other)
  Sender: FDA-Public Use
  Company Number: CA-JNJFOC-20120808438

PATIENT
  Sex: Female
  Weight: 61 kg

DRUGS (7)
  1. REMICADE [Suspect]
     Indication: CROHN'S DISEASE
     Dosage: 10TH INFUSION
     Route: 042
     Dates: start: 20120709
  2. PREVACID [Concomitant]
     Route: 065
  3. PANTHENOL [Concomitant]
     Route: 065
  4. OXYCONTIN [Concomitant]
     Route: 065
  5. REMICADE [Suspect]
     Route: 042
     Dates: start: 20110618
  6. GABAPENTIN [Concomitant]
     Route: 065
  7. PREDNISONE TAB [Concomitant]
     Route: 065

REACTIONS (3)
  - JOINT INJURY [None]
  - SKELETAL INJURY [None]
  - PYREXIA [None]
